FAERS Safety Report 5346674-2 (Version None)
Quarter: 2007Q2

REPORT INFORMATION
  Report Type: 
  Country: None (occurrence: None)
  Receive Date: 20070605
  Receipt Date: 20070529
  Transmission Date: 20071010
  Serious: Yes (Hospitalization, Other)
  Sender: FDA-Public Use
  Company Number: US-GENENTECH-240502

PATIENT
  Sex: Female
  Weight: 53.061 kg

DRUGS (22)
  1. XOLAIR [Suspect]
     Indication: DRUG USE FOR UNKNOWN INDICATION
     Dosage: 375 MG, Q2W
     Route: 058
     Dates: start: 20070207, end: 20070418
  2. ZYFLO [Concomitant]
     Indication: DRUG USE FOR UNKNOWN INDICATION
     Dosage: 600 MG, BID
     Dates: start: 20060301
  3. ALLEGRA [Concomitant]
     Indication: DRUG USE FOR UNKNOWN INDICATION
     Dosage: 180 MG, QD
     Route: 048
     Dates: start: 20070101
  4. PREDNISONE TAB [Concomitant]
     Indication: DRUG USE FOR UNKNOWN INDICATION
     Dosage: 20 MG, QD
     Dates: start: 20061001
  5. ASTELIN [Concomitant]
     Indication: DRUG USE FOR UNKNOWN INDICATION
     Dosage: 2 UNK, BID
  6. PERCOCET [Concomitant]
     Indication: DRUG USE FOR UNKNOWN INDICATION
  7. AMBIEN [Concomitant]
     Indication: DRUG USE FOR UNKNOWN INDICATION
     Dosage: 5 MG, UNK
     Route: 048
     Dates: start: 20061101
  8. HYDROCHLOROTHIAZIDE [Concomitant]
     Indication: DRUG USE FOR UNKNOWN INDICATION
     Dosage: 25 MG, UNK
     Dates: start: 20061101
  9. BENTYL [Concomitant]
     Indication: DRUG USE FOR UNKNOWN INDICATION
     Dosage: 10 MG, UNK
  10. SINGULAIR [Concomitant]
     Indication: DRUG USE FOR UNKNOWN INDICATION
     Dosage: 10 MG, QD
     Route: 048
  11. TIAZAC [Concomitant]
     Indication: DRUG USE FOR UNKNOWN INDICATION
     Dosage: 180 MG, QAM
  12. TIAZAC [Concomitant]
     Dosage: 360 MG, QPM
  13. EFFEXOR XR [Concomitant]
     Indication: DRUG USE FOR UNKNOWN INDICATION
  14. COLACE [Concomitant]
     Indication: DRUG USE FOR UNKNOWN INDICATION
     Dosage: 100 MG, BID
  15. VITAMIN [Concomitant]
     Indication: DRUG USE FOR UNKNOWN INDICATION
  16. OS-CAL [Concomitant]
     Indication: DRUG USE FOR UNKNOWN INDICATION
     Dosage: 500 MG, UNK
  17. ASCORBIC ACID [Concomitant]
     Indication: DRUG USE FOR UNKNOWN INDICATION
  18. FLONASE [Concomitant]
     Indication: DRUG USE FOR UNKNOWN INDICATION
  19. ADVAIR DISKUS 100/50 [Concomitant]
     Indication: DRUG USE FOR UNKNOWN INDICATION
     Dosage: 500/50, BID
  20. FLOVENT [Concomitant]
     Indication: DRUG USE FOR UNKNOWN INDICATION
     Dosage: 220 A?G, UNK
  21. ALBUTEROL [Concomitant]
     Indication: DRUG USE FOR UNKNOWN INDICATION
  22. ATROVENT [Concomitant]
     Indication: DRUG USE FOR UNKNOWN INDICATION
     Dates: start: 20061201

REACTIONS (4)
  - ANAPHYLACTIC REACTION [None]
  - SWELLING FACE [None]
  - SWOLLEN TONGUE [None]
  - THROAT IRRITATION [None]
